FAERS Safety Report 24378253 (Version 2)
Quarter: 2025Q3

REPORT INFORMATION
  Report Type: Spontaneous
  Country: US (occurrence: US)
  Receive Date: 20240930
  Receipt Date: 20250804
  Transmission Date: 20251020
  Serious: Yes (Other)
  Sender: PFIZER
  Company Number: US-PFIZER INC-PV202400125970

PATIENT
  Age: 13 Year
  Sex: Female

DRUGS (4)
  1. MEDROXYPROGESTERONE ACETATE [Suspect]
     Active Substance: MEDROXYPROGESTERONE ACETATE
     Indication: Ovarian failure
     Route: 048
  2. MEDROXYPROGESTERONE ACETATE [Suspect]
     Active Substance: MEDROXYPROGESTERONE ACETATE
     Indication: Hormone therapy
  3. ESTRADIOL [Suspect]
     Active Substance: ESTRADIOL
     Indication: Ovarian failure
     Route: 062
  4. ESTRADIOL [Suspect]
     Active Substance: ESTRADIOL
     Indication: Hormone therapy

REACTIONS (1)
  - Vaginal haemorrhage [Unknown]
